FAERS Safety Report 7705027-X (Version None)
Quarter: 2011Q3

REPORT INFORMATION
  Report Type: 
  Country: None (occurrence: None)
  Receive Date: 20110823
  Receipt Date: 20110819
  Transmission Date: 20111222
  Serious: Yes (Life-Threatening)
  Sender: FDA-Public Use
  Company Number: FR-PFIZER INC-2011191583

PATIENT
  Age: 50 Year
  Sex: Male

DRUGS (3)
  1. NOVANTRONE [Suspect]
     Indication: ACUTE MYELOID LEUKAEMIA
     Dosage: 12 MG/M2, 1X/DAY
     Route: 042
     Dates: start: 20081125, end: 20081126
  2. CYTARABINE [Suspect]
     Indication: ACUTE MYELOID LEUKAEMIA
     Dosage: 1000 MG/M2 ONCE EVERY 2 DAYS
     Route: 042
     Dates: start: 20081125, end: 20081130
  3. GEMTUZUMAB OZOGAMICIN [Suspect]
     Indication: ACUTE LEUKAEMIA
     Dosage: 6 MG/KG, 1X/DAY
     Route: 042
     Dates: start: 20081128, end: 20081128

REACTIONS (1)
  - BRONCHOPULMONARY ASPERGILLOSIS [None]
